FAERS Safety Report 6114298-5 (Version None)
Quarter: 2009Q1

REPORT INFORMATION
  Report Type: 
  Country: None (occurrence: None)
  Receive Date: 20090312
  Receipt Date: 20081210
  Transmission Date: 20090719
  Serious: No
  Sender: FDA-Public Use
  Company Number: US-ABBOTT-08P-163-0492150-00

PATIENT
  Sex: Female

DRUGS (10)
  1. DEPAKOTE [Suspect]
     Indication: MITOCHONDRIAL MYOPATHY
     Route: 048
     Dates: end: 20080701
  2. DEPAKOTE [Suspect]
     Indication: EPILEPSY
  3. KEPPRA [Concomitant]
     Indication: DRUG USE FOR UNKNOWN INDICATION
  4. PROZAC [Concomitant]
     Indication: DRUG USE FOR UNKNOWN INDICATION
  5. SYNTHROID [Concomitant]
     Indication: DRUG USE FOR UNKNOWN INDICATION
     Dates: start: 20050101
  6. INDOMETHACIN [Concomitant]
     Indication: HEADACHE
  7. KLONOPIN [Concomitant]
     Indication: DRUG USE FOR UNKNOWN INDICATION
  8. CO Q-10 [Concomitant]
     Indication: DRUG USE FOR UNKNOWN INDICATION
  9. AMINO ACID COMPLEX [Concomitant]
     Indication: DRUG USE FOR UNKNOWN INDICATION
  10. DIVALPROEX SODIUM [Concomitant]
     Indication: DRUG USE FOR UNKNOWN INDICATION
     Dosage: GENERIC

REACTIONS (2)
  - CONVULSION [None]
  - NASOPHARYNGITIS [None]
